FAERS Safety Report 10661984 (Version 1)
Quarter: 2014Q4

REPORT INFORMATION
  Report Type: Spontaneous
  Country: US (occurrence: None)
  Receive Date: 20141216
  Receipt Date: 20141216
  Transmission Date: 20150529
  Serious: Yes (Hospitalization)
  Sender: FDA-Public Use
  Company Number: NSR_01721_2014

PATIENT
  Age: 24 Year
  Sex: Male

DRUGS (2)
  1. BACLOFEN. [Suspect]
     Active Substance: BACLOFEN
     Indication: PRODUCT USED FOR UNKNOWN INDICATION
     Dosage: INCREASED FROM 75.10 MCG DAILY TO 98.04 MCG DAILY INTRATHECAL?
     Route: 037
  2. SERTRALINE [Suspect]
     Active Substance: SERTRALINE HYDROCHLORIDE
     Indication: PRODUCT USED FOR UNKNOWN INDICATION
     Dosage: INCREASED FROM 50 MG TO 100 MG (FREQUENCY UNKNOWN)?

REACTIONS (4)
  - Psychotic disorder [None]
  - Delusion [None]
  - Hallucination, auditory [None]
  - Electroencephalogram abnormal [None]
